FAERS Safety Report 6011931-3 (Version None)
Quarter: 2008Q4

REPORT INFORMATION
  Report Type: 
  Country: None (occurrence: None)
  Receive Date: 20081218
  Receipt Date: 20081006
  Transmission Date: 20090506
  Serious: No
  Sender: FDA-Public Use
  Company Number: US-ASTRAZENECA-2008UW21765

PATIENT
  Age: 72 Year
  Sex: Female
  Weight: 67.1 kg

DRUGS (4)
  1. CRESTOR [Suspect]
     Indication: BLOOD CHOLESTEROL INCREASED
     Route: 048
  2. CRESTOR [Suspect]
     Route: 048
     Dates: start: 20080930
  3. XANAX [Concomitant]
  4. ASPIRIN [Concomitant]

REACTIONS (4)
  - ASTHENIA [None]
  - BURNING SENSATION [None]
  - ERYTHEMA [None]
  - TREMOR [None]
